FAERS Safety Report 18778570 (Version 1)
Quarter: 2021Q1

REPORT INFORMATION
  Report Type: Spontaneous
  Country: CN (occurrence: CN)
  Receive Date: 20210123
  Receipt Date: 20210123
  Transmission Date: 20210419
  Serious: Yes (Life-Threatening)
  Sender: FDA-Public Use
  Company Number: NVSC2021CN015027

PATIENT
  Age: 80 Year
  Sex: Male
  Weight: 55 kg

DRUGS (3)
  1. ZOLEDRONIC ACID [Suspect]
     Active Substance: ZOLEDRONIC ACID
     Indication: METASTASES TO BONE
  2. NACL [Concomitant]
     Active Substance: SODIUM CHLORIDE
     Indication: CHOLANGIOCARCINOMA
     Dosage: 100 ML, QD
     Route: 041
     Dates: start: 20210114, end: 20210114
  3. ZOLEDRONIC ACID [Suspect]
     Active Substance: ZOLEDRONIC ACID
     Indication: CHOLANGIOCARCINOMA
     Dosage: 1 DF
     Route: 041
     Dates: start: 20210114, end: 20210114

REACTIONS (3)
  - Pyrexia [Recovering/Resolving]
  - Oxygen saturation decreased [Recovering/Resolving]
  - Chills [Recovering/Resolving]

NARRATIVE: CASE EVENT DATE: 20210114
